FAERS Safety Report 15713612 (Version 1)
Quarter: 2018Q4

REPORT INFORMATION
  Report Type: Spontaneous
  Country: US (occurrence: US)
  Receive Date: 20181212
  Receipt Date: 20181212
  Transmission Date: 20190205
  Serious: Yes (Disabling, Other)
  Sender: FDA-Public Use
  Company Number: None

PATIENT
  Age: 56 Year
  Sex: Male
  Weight: 90 kg

DRUGS (1)
  1. AMLOPIDINE BESYLATE TABLETS 10 M [Suspect]
     Active Substance: AMLODIPINE BESYLATE
     Indication: HYPERTENSION
     Dosage: ?          QUANTITY:1 TABLET(S);?
     Route: 048
     Dates: start: 20180402, end: 20181212

REACTIONS (6)
  - Dark circles under eyes [None]
  - Eye swelling [None]
  - Ocular hyperaemia [None]
  - Insomnia [None]
  - Product substitution issue [None]
  - Lethargy [None]

NARRATIVE: CASE EVENT DATE: 20181210
